FAERS Safety Report 7286529-X (Version None)
Quarter: 2011Q1

REPORT INFORMATION
  Report Type: 
  Country: None (occurrence: None)
  Receive Date: 20110131
  Receipt Date: 20110124
  Transmission Date: 20110831
  Serious: Yes (Hospitalization, Other)
  Sender: FDA-Public Use
  Company Number: 2009SP023526

PATIENT
  Age: 33 Year
  Sex: Female
  Weight: 88.905 kg

DRUGS (4)
  1. SINGULAIR [Concomitant]
  2. NUVARING [Suspect]
     Indication: CONTRACEPTION
     Dates: start: 20051201, end: 20070901
  3. PROVENTIL [Concomitant]
  4. ALLEGRA D 24 HOUR [Concomitant]

REACTIONS (19)
  - DEHYDRATION [None]
  - DIASTOLIC HYPERTENSION [None]
  - MITRAL VALVE PROLAPSE [None]
  - PHLEBITIS [None]
  - TACHYCARDIA [None]
  - IRON DEFICIENCY ANAEMIA [None]
  - MITRAL VALVE INCOMPETENCE [None]
  - PALPITATIONS [None]
  - MICROCYTIC ANAEMIA [None]
  - PULMONARY EMBOLISM [None]
  - LOSS OF CONSCIOUSNESS [None]
  - ARTHRALGIA [None]
  - PHLEBITIS SUPERFICIAL [None]
  - JOINT SWELLING [None]
  - ASTHMA [None]
  - SYNCOPE [None]
  - ERYTHEMA NODOSUM [None]
  - MYALGIA [None]
  - COR PULMONALE [None]
